FAERS Safety Report 19229962 (Version 1)
Quarter: 2021Q2

REPORT INFORMATION
  Report Type: Spontaneous
  Country: JP (occurrence: JP)
  Receive Date: 20210506
  Receipt Date: 20210506
  Transmission Date: 20210717
  Serious: Yes (Hospitalization, Other)
  Sender: FDA-Public Use
  Company Number: NVSJ2021JP006835

PATIENT
  Age: 84 Year
  Sex: Male

DRUGS (1)
  1. ENTRESTO [Suspect]
     Active Substance: SACUBITRIL\VALSARTAN
     Indication: CARDIAC FAILURE
     Dosage: 50 MG, BID
     Route: 048
     Dates: start: 202104, end: 202104

REACTIONS (6)
  - Renal impairment [Recovered/Resolved]
  - Contraindicated product administered [Unknown]
  - Blood pressure decreased [Recovered/Resolved]
  - Urine output increased [Unknown]
  - Anaemia [Unknown]
  - Dehydration [Recovered/Resolved]

NARRATIVE: CASE EVENT DATE: 202104
